FAERS Safety Report 7274401-0 (Version None)
Quarter: 2011Q1

REPORT INFORMATION
  Report Type: 
  Country: None (occurrence: None)
  Receive Date: 20110204
  Receipt Date: 20110131
  Transmission Date: 20110831
  Serious: No
  Sender: FDA-Public Use
  Company Number: US-JNJFOC-20110200820

PATIENT
  Sex: Male
  Weight: 72.58 kg

DRUGS (3)
  1. FENTANYL-100 [Suspect]
     Indication: PAIN IN EXTREMITY
     Dosage: NDC: 0781-7241-55
     Route: 062
  2. FENTANYL-100 [Suspect]
     Indication: ARTHRALGIA
     Dosage: NDC: 0781-7241-55
     Route: 062
  3. FENTANYL-100 [Suspect]
     Indication: BACK PAIN
     Dosage: NDC: 0781-7241-55
     Route: 062

REACTIONS (4)
  - PAIN IN EXTREMITY [None]
  - PRODUCT ADHESION ISSUE [None]
  - DRUG ADMINISTERED AT INAPPROPRIATE SITE [None]
  - HYPOAESTHESIA [None]
